FAERS Safety Report 25421445 (Version 1)
Quarter: 2025Q2

REPORT INFORMATION
  Report Type: Spontaneous
  Country: FR (occurrence: None)
  Receive Date: 20250611
  Receipt Date: 20250611
  Transmission Date: 20250716
  Serious: Yes (Other)
  Sender: ADIENNE PHARMA & BIOTECH
  Company Number: FR-ADIENNEP-2025AD000381

PATIENT
  Sex: Male

DRUGS (4)
  1. THIOTEPA [Suspect]
     Active Substance: THIOTEPA
     Indication: Stem cell transplant
     Dates: start: 2024, end: 2024
  2. FLUDARABINE [Suspect]
     Active Substance: FLUDARABINE PHOSPHATE
     Indication: Stem cell transplant
     Dosage: 40MG/M2/J D-5 TO D-2
     Dates: start: 2024, end: 2024
  3. BUSULFAN [Suspect]
     Active Substance: BUSULFAN
     Indication: Stem cell transplant
     Dates: start: 2024, end: 2024
  4. LAPINE T-LYMPHOCYTE IMMUNE GLOBULIN [Suspect]
     Active Substance: LAPINE T-LYMPHOCYTE IMMUNE GLOBULIN
     Indication: Stem cell transplant
     Dates: start: 2024, end: 2024

REACTIONS (4)
  - Gastroenteritis cryptosporidial [Recovered/Resolved]
  - Cryptosporidiosis infection [Recovered/Resolved]
  - Graft versus host disease in liver [Recovered/Resolved]
  - Graft versus host disease in gastrointestinal tract [Recovered/Resolved]
